FAERS Safety Report 17238699 (Version 2)
Quarter: 2021Q2

REPORT INFORMATION
  Report Type: Spontaneous
  Country: CH (occurrence: CH)
  Receive Date: 20200106
  Receipt Date: 20210505
  Transmission Date: 20210716
  Serious: Yes (Other)
  Sender: FDA-Public Use
  Company Number: CH-ALLERGAN-1953615US

PATIENT
  Sex: Female

DRUGS (10)
  1. SOLIAN [Suspect]
     Active Substance: AMISULPRIDE
     Indication: PRODUCT USED FOR UNKNOWN INDICATION
     Dosage: 200 MG
     Dates: start: 20191211, end: 20191211
  2. IMOVANE [Concomitant]
     Active Substance: ZOPICLONE
     Dosage: UNK
     Route: 065
  3. XANAX [Concomitant]
     Active Substance: ALPRAZOLAM
     Route: 065
  4. ESCITALOPRAM OXALATE ? BP [Suspect]
     Active Substance: ESCITALOPRAM OXALATE
     Indication: PRODUCT USED FOR UNKNOWN INDICATION
     Dosage: 10 MG, QD
     Route: 065
  5. ARIPIPRAZOLE. [Concomitant]
     Active Substance: ARIPIPRAZOLE
     Dosage: UNK
     Route: 065
     Dates: start: 20191218
  6. SOLIAN [Suspect]
     Active Substance: AMISULPRIDE
     Dosage: 400 MG, QD
     Route: 065
     Dates: start: 201910, end: 20191204
  7. RISPERDAL [Concomitant]
     Active Substance: RISPERIDONE
     Route: 065
     Dates: end: 201910
  8. TEMESTA [Concomitant]
     Dosage: UNK
     Route: 065
  9. SOLIAN [Suspect]
     Active Substance: AMISULPRIDE
     Dosage: 300 MG, QD
     Dates: start: 20191205, end: 20191210
  10. TOBREX [Concomitant]
     Active Substance: TOBRAMYCIN
     Dosage: UNK
     Route: 065
     Dates: start: 20191211

REACTIONS (6)
  - Muscle rigidity [Recovered/Resolved]
  - Parkinsonian gait [Recovered/Resolved]
  - Hypokinesia [Recovered/Resolved]
  - Myoclonus [Recovered/Resolved]
  - Akathisia [Recovered/Resolved]
  - Sinus tachycardia [Recovered/Resolved]

NARRATIVE: CASE EVENT DATE: 201911
